FAERS Safety Report 6749909-4 (Version None)
Quarter: 2010Q2

REPORT INFORMATION
  Report Type: 
  Country: None (occurrence: None)
  Receive Date: 20100601
  Receipt Date: 20100521
  Transmission Date: 20101027
  Serious: Yes (Other)
  Sender: FDA-Public Use
  Company Number: US-JNJFOC-20100508900

PATIENT
  Age: 2 Year
  Sex: Male
  Weight: 10.89 kg

DRUGS (4)
  1. CHILDREN'S TYLENOL SUSPENSION [Suspect]
     Indication: PYREXIA
     Dosage: 'SEVERAL' FOUR TIMES A DAY
     Route: 048
  2. CHILDREN'S TYLENOL SUSPENSION [Suspect]
     Indication: EAR INFECTION
     Dosage: 'SEVERAL' FOUR TIMES A DAY
     Route: 048
  3. CHILDREN'S MOTRIN [Suspect]
     Indication: PYREXIA
     Route: 048
  4. CHILDREN'S MOTRIN [Suspect]
     Indication: EAR INFECTION
     Route: 048

REACTIONS (3)
  - PRODUCT QUALITY ISSUE [None]
  - PYREXIA [None]
  - VOMITING [None]
